FAERS Safety Report 7571190-7 (Version None)
Quarter: 2011Q2

REPORT INFORMATION
  Report Type: 
  Country: None (occurrence: None)
  Receive Date: 20110624
  Receipt Date: 20110613
  Transmission Date: 20111010
  Serious: Yes (Hospitalization, Disabling)
  Sender: FDA-Public Use
  Company Number: US-ELI_LILLY_AND_COMPANY-US201106005160

PATIENT
  Sex: Male

DRUGS (14)
  1. SULFAMETHOXAZOLE [Concomitant]
     Dosage: 160 MG, UNKNOWN
  2. CRESTOR [Concomitant]
     Dosage: 10 MG, QD
  3. HUMALOG [Suspect]
  4. CITALOPRAM HYDROBROMIDE [Concomitant]
     Dosage: 20 MG, QD
  5. LEXIVA [Concomitant]
     Dosage: 700 MG, BID
  6. CLONAZEPAM [Concomitant]
     Dosage: 0.5 MG, UNKNOWN
  7. HUMALOG MIX 75/25 [Suspect]
     Indication: TYPE 2 DIABETES MELLITUS
     Dosage: 30 U, EACH MORNING
     Dates: start: 20060101
  8. CYMBALTA [Suspect]
     Indication: ANXIETY
     Dosage: 30 MG, QD
     Dates: start: 20080101
  9. NORVIR [Concomitant]
     Dosage: 100 MG, BID
  10. TRUVADA [Concomitant]
     Dosage: 300 MG, UNK
  11. HUMALOG MIX 75/25 [Suspect]
     Dosage: 20 U, OTHER
     Dates: start: 20060101
  12. SULFAMETHOXAZOLE [Concomitant]
     Dosage: 800 MG, UNKNOWN
  13. TRAMADOL HCL [Concomitant]
     Dosage: 50 MG, EVERY 8 HRS
  14. TRICOR [Concomitant]
     Dosage: 145 MG, QD

REACTIONS (7)
  - ARTHRITIS [None]
  - MALAISE [None]
  - KNEE ARTHROPLASTY [None]
  - HIV INFECTION [None]
  - BLOOD GLUCOSE INCREASED [None]
  - DEPRESSED MOOD [None]
  - DRUG DISPENSING ERROR [None]
